FAERS Safety Report 4649339-5 (Version None)
Quarter: 2005Q2

REPORT INFORMATION
  Report Type: 
  Country: None (occurrence: None)
  Receive Date: 20050429
  Receipt Date: 20050303
  Transmission Date: 20051028
  Serious: Yes (Disabling)
  Sender: FDA-Public Use
  Company Number: GB-ABBOTT-05P-167-0292833-00

PATIENT
  Sex: Female

DRUGS (3)
  1. EPILIM [Suspect]
     Indication: DRUG USE FOR UNKNOWN INDICATION
     Route: 065
     Dates: start: 19820801
  2. EPILIM [Suspect]
     Route: 065
  3. PHENYTOIN [Concomitant]
     Indication: EPILEPSY
     Route: 065
     Dates: start: 19750101, end: 19980101

REACTIONS (2)
  - CATARACT [None]
  - LOW TENSION GLAUCOMA [None]
